FAERS Safety Report 24611695 (Version 3)
Quarter: 2025Q1

REPORT INFORMATION
  Report Type: Spontaneous
  Country: JP (occurrence: JP)
  Receive Date: 20241113
  Receipt Date: 20250128
  Transmission Date: 20250409
  Serious: Yes (Death, Other)
  Sender: ALEXION PHARMACEUTICALS
  Company Number: JP-ASTRAZENECA-240113965_064320_P_1

PATIENT
  Age: 75 Year

DRUGS (6)
  1. ANDEXXA [Suspect]
     Active Substance: ANDEXANET ALFA
  2. ANDEXXA [Suspect]
     Active Substance: ANDEXANET ALFA
  3. ANDEXXA [Suspect]
     Active Substance: ANDEXANET ALFA
  4. EDOXABAN [Concomitant]
     Active Substance: EDOXABAN
  5. EDOXABAN [Concomitant]
     Active Substance: EDOXABAN
  6. RIVAROXABAN [Concomitant]
     Active Substance: RIVAROXABAN

REACTIONS (1)
  - Sepsis [Fatal]
